FAERS Safety Report 4516554-0 (Version None)
Quarter: 2004Q4

REPORT INFORMATION
  Report Type: 
  Country: None (occurrence: None)
  Receive Date: 20041202
  Receipt Date: 20040928
  Transmission Date: 20050328
  Serious: Yes (Hospitalization, Other)
  Sender: FDA-Public Use
  Company Number: NLWYE077230SEP04

PATIENT
  Sex: Male

DRUGS (4)
  1. ENBREL [Suspect]
     Indication: RHEUMATOID ARTHRITIS
     Dosage: UNKNOWN
     Route: 058
     Dates: start: 20040826, end: 20041004
  2. METHOTREXATE [Concomitant]
     Dates: start: 20020101
  3. FOLIC ACID [Concomitant]
     Dates: start: 20020101
  4. NAPROXEN [Concomitant]
     Dates: start: 19940101

REACTIONS (3)
  - ANGIONEUROTIC OEDEMA [None]
  - BLOOD CULTURE POSITIVE [None]
  - PNEUMONIA [None]
